FAERS Safety Report 4571908-1 (Version None)
Quarter: 2005Q1

REPORT INFORMATION
  Report Type: 
  Country: None (occurrence: None)
  Receive Date: 20050202
  Receipt Date: 20050120
  Transmission Date: 20050727
  Serious: Yes (Other)
  Sender: FDA-Public Use
  Company Number: SUSI-2005-00036

PATIENT
  Age: 13 Year
  Sex: Male
  Weight: 49.9 kg

DRUGS (2)
  1. ADDERALL XR (DEXTROMAPHETAMINE SULFATE, DEXTROAMPHETAMINE SACCHARTATE, [Suspect]
     Indication: ATTENTION DEFICIT/HYPERACTIVITY DISORDER
     Dosage: 15 MG, 1X/DAY; QD, ORAL
     Route: 048
     Dates: start: 20050101
  2. CONCERTA [Concomitant]

REACTIONS (4)
  - ABASIA [None]
  - CONDITION AGGRAVATED [None]
  - MUSCLE SPASTICITY [None]
  - PAIN [None]
